FAERS Safety Report 23374928 (Version 1)
Quarter: 2024Q1

REPORT INFORMATION
  Report Type: Spontaneous
  Country: CA (occurrence: CA)
  Receive Date: 20240106
  Receipt Date: 20240106
  Transmission Date: 20240410
  Serious: Yes (Other)
  Sender: FDA-Public Use
  Company Number: CA-AUROBINDO-AUR-APL-2024-000055

PATIENT
  Age: 42 Year
  Sex: Male
  Weight: 69 kg

DRUGS (2)
  1. CINACALCET [Suspect]
     Active Substance: CINACALCET
     Indication: Product used for unknown indication
     Dosage: 60 MILLIGRAM, ONCE A DAY
     Route: 065
  2. CINACALCET [Suspect]
     Active Substance: CINACALCET
     Dosage: 30 MILLIGRAM, ONCE A DAY
     Route: 065

REACTIONS (4)
  - Hepatic steatosis [Unknown]
  - Pseudofracture [Unknown]
  - Drug intolerance [Unknown]
  - Off label use [Unknown]
